FAERS Safety Report 23599806 (Version 1)
Quarter: 2024Q1

REPORT INFORMATION
  Report Type: Spontaneous
  Country: PT (occurrence: PT)
  Receive Date: 20240306
  Receipt Date: 20240306
  Transmission Date: 20240410
  Serious: Yes (Other)
  Sender: FDA-Public Use
  Company Number: PT-MSNLABS-2024MSNLIT00469

PATIENT

DRUGS (4)
  1. PREGABALIN [Suspect]
     Active Substance: PREGABALIN
     Indication: Post herpetic neuralgia
     Route: 065
  2. MORPHINE [Suspect]
     Active Substance: MORPHINE
     Indication: Post herpetic neuralgia
     Dosage: 40 - 50 MG/DAILY
     Route: 048
  3. ACETAMINOPHEN [Suspect]
     Active Substance: ACETAMINOPHEN
     Indication: Post herpetic neuralgia
     Route: 065
  4. DULOXETINE [Suspect]
     Active Substance: DULOXETINE
     Indication: Post herpetic neuralgia
     Route: 065

REACTIONS (3)
  - Drug ineffective [Unknown]
  - Somnolence [Unknown]
  - Constipation [Unknown]
